FAERS Safety Report 7117338-X (Version None)
Quarter: 2010Q4

REPORT INFORMATION
  Report Type: 
  Country: None (occurrence: None)
  Receive Date: 20101122
  Receipt Date: 20101116
  Transmission Date: 20110411
  Serious: Yes (Congenital Anomaly)
  Sender: FDA-Public Use
  Company Number: GB-TEVA-255768ISR

PATIENT

DRUGS (4)
  1. TRAZODONE [Suspect]
     Indication: DEPRESSION
     Route: 064
     Dates: start: 20090817, end: 20091216
  2. FLUOXETINE HYDROCHLORIDE [Suspect]
     Indication: DEPRESSION
     Route: 064
     Dates: start: 20090817, end: 20091216
  3. METHADONE [Suspect]
     Indication: DRUG DEPENDENCE
     Dates: start: 20081101, end: 20100525
  4. METHADONE [Suspect]
     Dates: start: 20100525

REACTIONS (3)
  - CHOROIDAL COLOBOMA [None]
  - IRIS COLOBOMA [None]
  - OPTIC NERVE DISORDER [None]
